FAERS Safety Report 4762407-2 (Version None)
Quarter: 2005Q3

REPORT INFORMATION
  Report Type: 
  Country: None (occurrence: None)
  Receive Date: 20050901
  Receipt Date: 20050531
  Transmission Date: 20060218
  Serious: No
  Sender: FDA-Public Use
  Company Number: 200511081BWH

PATIENT
  Age: 56 Year
  Sex: Male

DRUGS (9)
  1. LEVITRA [Suspect]
     Indication: ERECTILE DYSFUNCTION
     Dosage: 20 MG, PRN, ORAL
     Route: 048
     Dates: end: 20050523
  2. INSULIN [Concomitant]
  3. POTASSIUM [Concomitant]
  4. COZAAR [Concomitant]
  5. ACTOS [Concomitant]
  6. PROTONIX [Concomitant]
  7. LIPITOR [Concomitant]
  8. ATENOLOL [Concomitant]
  9. FOLIC ACID [Concomitant]

REACTIONS (1)
  - ERECTILE DYSFUNCTION [None]
